FAERS Safety Report 7493786-3 (Version None)
Quarter: 2011Q2

REPORT INFORMATION
  Report Type: 
  Country: None (occurrence: None)
  Receive Date: 20110520
  Receipt Date: 20110311
  Transmission Date: 20111010
  Serious: No
  Sender: FDA-Public Use
  Company Number: US-ASTRAZENECA-2011SE13753

PATIENT
  Sex: Female

DRUGS (1)
  1. VIMOVO [Suspect]
     Dosage: 500 MG NAPROXEN / 20MG ESOMEPRAZOLE MAGNESIUM, DAILY
     Route: 048

REACTIONS (1)
  - FEELING JITTERY [None]
